FAERS Safety Report 7264086-1 (Version None)
Quarter: 2011Q1

REPORT INFORMATION
  Report Type: 
  Country: None (occurrence: None)
  Receive Date: 20110120
  Receipt Date: 20110106
  Transmission Date: 20110831
  Serious: Yes (Hospitalization)
  Sender: FDA-Public Use
  Company Number: 018020

PATIENT
  Age: 64 Year
  Sex: Female
  Weight: 64.9 kg

DRUGS (3)
  1. CIMZIA [Suspect]
     Indication: CROHN'S DISEASE
     Dosage: (SUBCUTANEOUS), (400 MG 1X/4 WEEKS, PFS SUBCUTANEOUS), (ONE SHOT SUBCUTANEOUS)
     Route: 058
     Dates: start: 20090701
  2. CIMZIA [Suspect]
     Indication: CROHN'S DISEASE
     Dosage: (SUBCUTANEOUS), (400 MG 1X/4 WEEKS, PFS SUBCUTANEOUS), (ONE SHOT SUBCUTANEOUS)
     Route: 058
     Dates: start: 20100531
  3. CIMZIA [Suspect]
     Indication: CROHN'S DISEASE
     Dosage: (SUBCUTANEOUS), (400 MG 1X/4 WEEKS, PFS SUBCUTANEOUS), (ONE SHOT SUBCUTANEOUS)
     Route: 058
     Dates: end: 20101224

REACTIONS (9)
  - OBSTRUCTION [None]
  - FATIGUE [None]
  - SWELLING [None]
  - BOWEL MOVEMENT IRREGULARITY [None]
  - ABDOMINAL HERNIA [None]
  - PAINFUL DEFAECATION [None]
  - POST PROCEDURAL COMPLICATION [None]
  - SMALL INTESTINAL OBSTRUCTION [None]
  - ADHESION [None]
